FAERS Safety Report 5588593-2 (Version None)
Quarter: 2007Q4

REPORT INFORMATION
  Report Type: 
  Country: None (occurrence: None)
  Receive Date: 20071212
  Receipt Date: 20071109
  Transmission Date: 20080405
  Serious: No
  Sender: FDA-Public Use
  Company Number: 2007RL000504

PATIENT
  Age: 61 Year
  Sex: Female

DRUGS (4)
  1. LOVAZA [Suspect]
     Indication: BLOOD TRIGLYCERIDES INCREASED
     Dosage: 4 GM;QD;PO
     Route: 048
     Dates: start: 20071106, end: 20071108
  2. COUMADIN [Concomitant]
  3. ACCUPRIL [Concomitant]
  4. ZETIA [Concomitant]

REACTIONS (2)
  - CONDITION AGGRAVATED [None]
  - DIARRHOEA [None]
